FAERS Safety Report 6859478-6 (Version None)
Quarter: 2010Q3

REPORT INFORMATION
  Report Type: 
  Country: None (occurrence: None)
  Receive Date: 20100719
  Receipt Date: 20080228
  Transmission Date: 20110219
  Serious: No
  Sender: FDA-Public Use
  Company Number: US-PFIZER INC-2008020033

PATIENT
  Sex: Female
  Weight: 70 kg

DRUGS (12)
  1. CHANTIX [Suspect]
     Indication: SMOKING CESSATION THERAPY
     Dates: start: 20070401, end: 20070901
  2. CHANTIX [Suspect]
  3. HYDROCORTISONE [Concomitant]
     Indication: ADRENAL INSUFFICIENCY
  4. LEVOTHROID [Concomitant]
     Indication: ADRENAL INSUFFICIENCY
  5. DETROL [Concomitant]
  6. SERTRALINE HCL [Concomitant]
  7. NEXIUM [Concomitant]
  8. EVISTA [Concomitant]
  9. CYMBALTA [Concomitant]
  10. ALL OTHER THERAPEUTIC PRODUCTS [Concomitant]
  11. LORAZEPAM [Concomitant]
  12. ADDERALL XR 10 [Concomitant]

REACTIONS (1)
  - NAUSEA [None]
